FAERS Safety Report 19085817 (Version 1)
Quarter: 2021Q2

REPORT INFORMATION
  Report Type: Spontaneous
  Country: FR (occurrence: FR)
  Receive Date: 20210402
  Receipt Date: 20210402
  Transmission Date: 20210717
  Serious: Yes (Death)
  Sender: FDA-Public Use
  Company Number: FR-SUN PHARMACEUTICAL INDUSTRIES LTD-2021RR-289114

PATIENT
  Age: 42 Year
  Sex: Male

DRUGS (7)
  1. OXAZEPAM. [Suspect]
     Active Substance: OXAZEPAM
     Indication: DRUG ABUSE
     Dosage: UNK
     Route: 065
  2. METHADONE AP?HP [Suspect]
     Active Substance: METHADONE HYDROCHLORIDE
     Indication: DRUG ABUSE
     Dosage: 1020 MICROG/L, UNK
     Route: 065
  3. PAROXETINE (CHLORHYDRATE DE) ANHYDRE [Suspect]
     Active Substance: PAROXETINE
     Indication: DRUG ABUSE
     Dosage: 227 MICROG/L, UNK
     Route: 065
  4. NORDAZEPAM [Suspect]
     Active Substance: NORDAZEPAM
     Indication: DRUG ABUSE
     Dosage: 588 UG/L, UNK
     Route: 065
  5. OLANZAPINE. [Suspect]
     Active Substance: OLANZAPINE
     Indication: DRUG ABUSE
     Dosage: UNK
     Route: 065
  6. TEMAZEPAM. [Suspect]
     Active Substance: TEMAZEPAM
     Indication: DRUG ABUSE
     Dosage: UNK
     Route: 065
  7. DIAZEPAM. [Suspect]
     Active Substance: DIAZEPAM
     Indication: DRUG ABUSE
     Dosage: 534 MICROG/L, UNK
     Route: 065

REACTIONS (3)
  - Gastrointestinal haemorrhage [Fatal]
  - Respiratory depression [Fatal]
  - Drug abuse [Fatal]

NARRATIVE: CASE EVENT DATE: 2021
